FAERS Safety Report 20068282 (Version 1)
Quarter: 2021Q4

REPORT INFORMATION
  Report Type: Spontaneous
  Country: US (occurrence: None)
  Receive Date: 20211115
  Receipt Date: 20211115
  Transmission Date: 20220304
  Serious: Yes (Other)
  Sender: FDA-Public Use
  Company Number: US-ROCHE-2950637

PATIENT
  Age: 57 Year
  Sex: Male
  Weight: 83.990 kg

DRUGS (3)
  1. OCREVUS [Suspect]
     Active Substance: OCRELIZUMAB
     Indication: Relapsing multiple sclerosis
     Dosage: LAST INFUSION
     Route: 042
     Dates: start: 20210921
  2. METHYLPHENIDATE [Concomitant]
     Active Substance: METHYLPHENIDATE
     Indication: Fatigue
     Dosage: YES
     Route: 048
  3. COVID-19 VACCINE [Concomitant]
     Route: 065

REACTIONS (10)
  - Decreased immune responsiveness [Unknown]
  - Fall [Unknown]
  - Relapsing multiple sclerosis [Unknown]
  - Skin cancer [Unknown]
  - Off label use [Unknown]
  - Gait disturbance [Recovered/Resolved]
  - Visual impairment [Recovered/Resolved]
  - Amnesia [Not Recovered/Not Resolved]
  - Multiple sclerosis [Recovered/Resolved]
  - Cognitive disorder [Not Recovered/Not Resolved]

NARRATIVE: CASE EVENT DATE: 20211001
